FAERS Safety Report 6366804-3 (Version None)
Quarter: 2009Q3

REPORT INFORMATION
  Report Type: 
  Country: None (occurrence: None)
  Receive Date: 20090921
  Receipt Date: 20090909
  Transmission Date: 20100115
  Serious: Yes (Hospitalization)
  Sender: FDA-Public Use
  Company Number: US-WATSON-2009-07409

PATIENT
  Age: 34 Year
  Sex: Female

DRUGS (5)
  1. BUSPIRONE HYDROCHLORIDE (WATSON LABORATORIES) [Suspect]
     Indication: ANXIETY
     Dosage: 7.5 MG, DAILY
     Route: 048
     Dates: start: 20090910
  2. BUSPIRONE HYDROCHLORIDE (WATSON LABORATORIES) [Suspect]
     Indication: PANIC ATTACK
     Dosage: 5 MG, DAILY
     Route: 048
     Dates: start: 20090827, end: 20090909
  3. BUSPIRONE HYDROCHLORIDE (WATSON LABORATORIES) [Suspect]
     Dosage: LESS THAN 1 MG/DAILY (^HALF OF A QUARTER OF A 5 MG PILL^)
     Route: 048
     Dates: start: 20090701, end: 20090801
  4. BUSPIRONE HYDROCHLORIDE (WATSON LABORATORIES) [Suspect]
     Dosage: 5 MG, DAILY
     Route: 048
     Dates: start: 20090501, end: 20090601
  5. NEXIUM [Suspect]
     Indication: GASTROOESOPHAGEAL REFLUX DISEASE
     Dosage: 40 MG, DAILY
     Route: 048
     Dates: start: 20020101, end: 20090701

REACTIONS (11)
  - ANAEMIA [None]
  - BURNING SENSATION [None]
  - DIZZINESS [None]
  - DRUG INEFFECTIVE [None]
  - DYSPNOEA [None]
  - GASTRIC PH INCREASED [None]
  - MUSCLE TWITCHING [None]
  - ORTHOSTATIC HYPOTENSION [None]
  - OXYGEN SATURATION DECREASED [None]
  - PANIC ATTACK [None]
  - SYNCOPE [None]
